FAERS Safety Report 8618910-8 (Version None)
Quarter: 2012Q3

REPORT INFORMATION
  Report Type: 
  Country: None (occurrence: None)
  Receive Date: 20120824
  Receipt Date: 20120813
  Transmission Date: 20120928
  Serious: Yes (Hospitalization)
  Sender: FDA-Public Use
  Company Number: BR-PFIZER INC-2012206107

PATIENT
  Age: 72 Year
  Sex: Female
  Weight: 66 kg

DRUGS (6)
  1. CRESTOR [Suspect]
     Indication: BLOOD CHOLESTEROL INCREASED
     Dosage: 10 MG DAILY
     Route: 048
     Dates: end: 20120301
  2. BENICAR [Suspect]
     Indication: HYPERTENSION
     Dosage: 10/12.5 MG DAILY
     Route: 048
     Dates: end: 20120301
  3. CRESTOR [Suspect]
     Dosage: 40 MG, UNK
     Route: 048
  4. SYNTHROID [Concomitant]
     Indication: HYPOTHYROIDISM
     Dosage: 88 MCG, UNK
     Route: 048
  5. ATENOLOL [Suspect]
     Indication: HYPERTENSION
     Dosage: 25 MG, 2X/DAY
     Route: 048
     Dates: start: 20120301
  6. DIGEPLUS [Concomitant]
     Indication: REFLUX GASTRITIS
     Route: 048

REACTIONS (3)
  - BLOOD CHOLESTEROL INCREASED [None]
  - ANGINA PECTORIS [None]
  - OFF LABEL USE [None]
